FAERS Safety Report 6971920-9 (Version None)
Quarter: 2010Q3

REPORT INFORMATION
  Report Type: 
  Country: None (occurrence: None)
  Receive Date: 20100908
  Receipt Date: 20100908
  Transmission Date: 20110219
  Serious: Yes (Life-Threatening, Other)
  Sender: FDA-Public Use
  Company Number: None

PATIENT
  Sex: Male
  Weight: 127.0072 kg

DRUGS (2)
  1. ZYPREXA [Suspect]
     Indication: MENTAL DISORDER
     Dosage: ONE TABLET ONCE A DAY PO
     Route: 048
     Dates: start: 20040301, end: 20060101
  2. SEROQUEL [Suspect]
     Indication: MENTAL DISORDER
     Dosage: ONE TABLET ONCE A DAY PO
     Route: 048
     Dates: start: 19990814, end: 20000101

REACTIONS (1)
  - DIABETES MELLITUS [None]
